FAERS Safety Report 21707569 (Version 2)
Quarter: 2022Q4

REPORT INFORMATION
  Report Type: Report from Study
  Country: MX (occurrence: MX)
  Receive Date: 20221209
  Receipt Date: 20221226
  Transmission Date: 20230112
  Serious: Yes (Other)
  Sender: FDA-Public Use
  Company Number: MX-BAYER-2022A168737

PATIENT
  Age: 40 Year
  Sex: Male

DRUGS (3)
  1. STIVARGA [Suspect]
     Active Substance: REGORAFENIB
     Indication: Colorectal cancer
     Dosage: 160 MG, QD
     Route: 048
     Dates: start: 20220301, end: 20221021
  2. STIVARGA [Suspect]
     Active Substance: REGORAFENIB
     Indication: Colorectal cancer
     Dosage: UNK
     Dates: start: 20221025
  3. DICLOFENAC [Concomitant]
     Active Substance: DICLOFENAC
     Indication: Pain
     Dosage: 100 MG, Q8HR
     Route: 048

REACTIONS (6)
  - Infected neoplasm [Recovered/Resolved]
  - Tumour exudation [None]
  - Body temperature increased [Recovered/Resolved]
  - Wound [None]
  - Infected neoplasm [Recovered/Resolved with Sequelae]
  - Metastases to neck [None]

NARRATIVE: CASE EVENT DATE: 20221005
